FAERS Safety Report 9666053 (Version 1)
Quarter: 2013Q4

REPORT INFORMATION
  Report Type: Spontaneous
  Country: GB (occurrence: GB)
  Receive Date: 20131103
  Receipt Date: 20131103
  Transmission Date: 20140711
  Serious: Yes (Other)
  Sender: FDA-Public Use
  Company Number: GB-009507513-1310GBR014667

PATIENT
  Age: 51 Year
  Sex: Female
  Weight: 48.98 kg

DRUGS (2)
  1. MIRTAZAPINE [Suspect]
     Indication: ANXIETY DISORDER
     Dosage: 45 MG, UNK
     Route: 048
     Dates: start: 20130722, end: 20131001
  2. MIRTAZAPINE [Suspect]
     Indication: DEPRESSION

REACTIONS (4)
  - Eye oedema [Recovered/Resolved]
  - Face oedema [Recovered/Resolved]
  - Abdominal distension [Recovered/Resolved]
  - Oedema peripheral [Recovered/Resolved]
